FAERS Safety Report 7292762-3 (Version None)
Quarter: 2011Q1

REPORT INFORMATION
  Report Type: 
  Country: None (occurrence: None)
  Receive Date: 20110210
  Receipt Date: 20110210
  Transmission Date: 20110831
  Serious: Yes (Hospitalization)
  Sender: FDA-Public Use
  Company Number: None

PATIENT
  Age: 83 Year
  Sex: Male
  Weight: 67 kg

DRUGS (1)
  1. METOPROLOL SUCCINATE [Suspect]
     Dates: start: 20101231, end: 20101231

REACTIONS (1)
  - BRADYCARDIA [None]
